FAERS Safety Report 4937183-0 (Version None)
Quarter: 2006Q1

REPORT INFORMATION
  Report Type: 
  Country: None (occurrence: None)
  Receive Date: 20060307
  Receipt Date: 20060307
  Transmission Date: 20060701
  Serious: Yes (Hospitalization)
  Sender: FDA-Public Use
  Company Number: None

PATIENT
  Sex: Male
  Weight: 162.6 kg

DRUGS (8)
  1. REVLIMID [Suspect]
     Indication: GLIOBLASTOMA MULTIFORME
     Dosage: 20 MG/M2 X 21 DAY PO
     Route: 048
     Dates: start: 20051111, end: 20060123
  2. KEPPRA [Concomitant]
  3. PRILOSEC [Concomitant]
  4. TYELON [Concomitant]
  5. OXYCODONE [Concomitant]
  6. PERCOCET [Concomitant]
  7. AMBIEN [Concomitant]
  8. ATIVAN [Concomitant]

REACTIONS (7)
  - BACTERIAL INFECTION [None]
  - BRAIN ABSCESS [None]
  - CEREBRAL DISORDER [None]
  - COMPUTERISED TOMOGRAM ABNORMAL [None]
  - COORDINATION ABNORMAL [None]
  - DYSARTHRIA [None]
  - HYPOAESTHESIA [None]
